FAERS Safety Report 19154356 (Version 1)
Quarter: 2021Q2

REPORT INFORMATION
  Report Type: Spontaneous
  Country: ZA (occurrence: ZA)
  Receive Date: 20210419
  Receipt Date: 20210419
  Transmission Date: 20210717
  Serious: Yes (Death, Hospitalization)
  Sender: FDA-Public Use
  Company Number: ZA-SEBELA IRELAND LIMITED-2021SEB00055

PATIENT

DRUGS (9)
  1. AURANOFIN (ASTELLAS) [Suspect]
     Active Substance: AURANOFIN
     Dosage: 6 MG, 1X/DAY
     Route: 048
  2. RIFABUTIN. [Concomitant]
     Active Substance: RIFABUTIN
     Route: 048
  3. PYRAZINAMIDE. [Concomitant]
     Active Substance: PYRAZINAMIDE
     Route: 048
  4. AURANOFIN [Suspect]
     Active Substance: AURANOFIN
     Dosage: 6 MG, 1X/DAY
     Route: 048
  5. PYRIDOXINE [Concomitant]
     Active Substance: PYRIDOXINE
     Route: 048
  6. AURANOFIN [Suspect]
     Active Substance: AURANOFIN
     Indication: TUBERCULOSIS
     Dosage: 3 MG, 1X/DAY
     Route: 048
  7. ISONIAZID. [Concomitant]
     Active Substance: ISONIAZID
     Route: 048
  8. AURANOFIN (ASTELLAS) [Suspect]
     Active Substance: AURANOFIN
     Indication: TUBERCULOSIS
     Dosage: 3 MG, 1X/DAY
     Route: 048
  9. ETHAMBUTOL [Concomitant]
     Active Substance: ETHAMBUTOL HYDROCHLORIDE
     Route: 048

REACTIONS (5)
  - Gastroenteritis [Fatal]
  - Respiratory failure [Fatal]
  - Hypotension [Fatal]
  - Disseminated intravascular coagulation [Fatal]
  - Abdominal sepsis [Fatal]
